FAERS Safety Report 25763534 (Version 1)
Quarter: 2025Q3

REPORT INFORMATION
  Report Type: Spontaneous
  Country: US (occurrence: US)
  Receive Date: 20250905
  Receipt Date: 20250905
  Transmission Date: 20251021
  Serious: No
  Sender: DOMPE FARMACEUTICI
  Company Number: US-FARMAPROD-202410-3625

PATIENT
  Sex: Female
  Weight: 63.5 kg

DRUGS (14)
  1. OXERVATE [Suspect]
     Active Substance: CENEGERMIN-BKBJ
     Indication: Neurotrophic keratopathy
     Route: 047
     Dates: start: 20231017
  2. OXERVATE [Suspect]
     Active Substance: CENEGERMIN-BKBJ
     Route: 047
     Dates: start: 20241008
  3. BROMFENAC SODIUM [Concomitant]
     Active Substance: BROMFENAC SODIUM
  4. COLLAGEN [Concomitant]
     Active Substance: COLLAGEN
  5. REFRESH CLASSIC [Concomitant]
     Active Substance: POLYVINYL ALCOHOL\POVIDONE
  6. LUBRICATING EYE [Concomitant]
     Active Substance: MINERAL OIL\PETROLATUM
  7. CEQUA [Concomitant]
     Active Substance: CYCLOSPORINE
  8. PANTOPRAZOLE SODIUM [Concomitant]
     Active Substance: PANTOPRAZOLE SODIUM
  9. HYDROMORPHONE HCL [Concomitant]
     Active Substance: HYDROMORPHONE HYDROCHLORIDE
  10. SUCRALFATE [Concomitant]
     Active Substance: SUCRALFATE
  11. ASCORBIC ACID [Concomitant]
     Active Substance: ASCORBIC ACID
  12. CYANOCOBALAMIN [Concomitant]
     Active Substance: CYANOCOBALAMIN
  13. VITAMIN D2 [Concomitant]
     Active Substance: ERGOCALCIFEROL
  14. ZALEPLON [Concomitant]
     Active Substance: ZALEPLON

REACTIONS (1)
  - Ocular discomfort [Unknown]
